FAERS Safety Report 9507998 (Version 3)
Quarter: 2013Q3

REPORT INFORMATION
  Report Type: Spontaneous
  Country: FR (occurrence: None)
  Receive Date: 20130905
  Receipt Date: 20130923
  Transmission Date: 20140515
  Serious: Yes (Hospitalization)
  Sender: FDA-Public Use
  Company Number: SYM-2013-10175

PATIENT
  Age: 84 Year
  Sex: Male

DRUGS (7)
  1. MONO-TILDIEM [Suspect]
     Indication: PRODUCT USED FOR UNKNOWN INDICATION
     Route: 048
     Dates: end: 20130710
  2. APROVEL [Suspect]
     Indication: PRODUCT USED FOR UNKNOWN INDICATION
     Route: 048
     Dates: end: 20130710
  3. FUROSEMIDE [Suspect]
     Indication: PRODUCT USED FOR UNKNOWN INDICATION
     Route: 048
     Dates: end: 20130710
  4. HEMIGOXINE NATIVELLE (DIGOXIN) (DIGOXIN) [Concomitant]
     Route: 048
     Dates: end: 20130710
  5. LIPANTHYL (FENOFIBRATE) [Concomitant]
  6. PREVISCAN (FLUINDIONE) [Concomitant]
  7. BISOPROLOL (BISOPROLOL) [Concomitant]

REACTIONS (8)
  - Renal failure acute [None]
  - Hypotension [None]
  - Dehydration [None]
  - General physical health deterioration [None]
  - Overdose [None]
  - Arrhythmia [None]
  - Atrioventricular block [None]
  - International normalised ratio increased [None]
